FAERS Safety Report 25085865 (Version 2)
Quarter: 2025Q1

REPORT INFORMATION
  Report Type: Spontaneous
  Country: None (occurrence: CA)
  Receive Date: 20250317
  Receipt Date: 20250324
  Transmission Date: 20250409
  Serious: Yes (Other)
  Sender: MYLAN
  Company Number: CA-MYLANLABS-2024M1080110

PATIENT
  Sex: Female

DRUGS (1)
  1. REVATIO [Suspect]
     Active Substance: SILDENAFIL CITRATE
     Indication: Heart disease congenital
     Dosage: 20 MILLIGRAM, TID (THRICE DAILY)
     Dates: start: 20240422

REACTIONS (2)
  - Back pain [Not Recovered/Not Resolved]
  - Product dose omission issue [Unknown]
